FAERS Safety Report 24553669 (Version 1)
Quarter: 2024Q4

REPORT INFORMATION
  Report Type: Report from Study
  Country: US (occurrence: US)
  Receive Date: 20241028
  Receipt Date: 20241028
  Transmission Date: 20250114
  Serious: No
  Sender: ROCHE
  Company Number: US-ROCHE-3111004

PATIENT
  Age: 11 Year
  Sex: Male

DRUGS (4)
  1. NUTROPIN AQ [Suspect]
     Active Substance: SOMATROPIN
     Indication: Short stature
     Dosage: NUSPIN 10 MG PEN, 1.2 MG DAILY
     Route: 058
     Dates: start: 202106
  2. DIAZEPAM [Concomitant]
     Active Substance: DIAZEPAM
  3. SODIUM FLUORIDE\STANNOUS FLUORIDE [Concomitant]
     Active Substance: SODIUM FLUORIDE\STANNOUS FLUORIDE
  4. LEVOTHYROXINE [Concomitant]
     Active Substance: LEVOTHYROXINE

REACTIONS (4)
  - Product storage error [Unknown]
  - Product dose omission issue [Unknown]
  - Hypothyroidism [Unknown]
  - Seizure [Unknown]

NARRATIVE: CASE EVENT DATE: 20220722
